FAERS Safety Report 4750306-1 (Version None)
Quarter: 2005Q3

REPORT INFORMATION
  Report Type: 
  Country: None (occurrence: None)
  Receive Date: 20050818
  Receipt Date: 20050808
  Transmission Date: 20060218
  Serious: Yes (Other)
  Sender: FDA-Public Use
  Company Number: 2005113290

PATIENT
  Age: 84 Year
  Sex: Male
  Weight: 63.5036 kg

DRUGS (8)
  1. DILANTIN [Suspect]
     Indication: CONVULSION
     Dosage: 300 MG (1 IN 1 D), ORAL
     Route: 048
     Dates: start: 20050722, end: 20050801
  2. NITROGLYCERIN [Concomitant]
  3. OXYBUTYNIN CHLORIDE [Concomitant]
  4. LISINOPRIL [Concomitant]
  5. ARICEPT [Concomitant]
  6. RANITIDINE HCL [Concomitant]
  7. ASPIRIN [Concomitant]
  8. ACETAMINOPHEN [Concomitant]

REACTIONS (2)
  - HALLUCINATION [None]
  - IMPAIRED SELF-CARE [None]
